FAERS Safety Report 7853267-1 (Version None)
Quarter: 2011Q4

REPORT INFORMATION
  Report Type: 
  Country: None (occurrence: None)
  Receive Date: 20111026
  Receipt Date: 20111017
  Transmission Date: 20120403
  Serious: Yes (Death, Other)
  Sender: FDA-Public Use
  Company Number: US-BAXTER-2011BH030755

PATIENT
  Sex: Male

DRUGS (1)
  1. DIANEAL [Suspect]
     Indication: PERITONEAL DIALYSIS
     Route: 033
     Dates: start: 20110202, end: 20110916

REACTIONS (4)
  - PNEUMONIA [None]
  - WOUND [None]
  - CARDIAC DISORDER [None]
  - OSTEOMYELITIS BACTERIAL [None]
